FAERS Safety Report 6186407-3 (Version None)
Quarter: 2009Q2

REPORT INFORMATION
  Report Type: 
  Country: None (occurrence: None)
  Receive Date: 20090511
  Receipt Date: 20090504
  Transmission Date: 20091009
  Serious: Yes (Other)
  Sender: FDA-Public Use
  Company Number: US-JNJCH-2009011431

PATIENT
  Age: 18 Year
  Sex: Male

DRUGS (1)
  1. LISTERINE WHITENING PRE-BRUSH RINSE [Suspect]
     Indication: DENTAL CARE
     Dosage: TEXT:RECOMMENDED AMOUNT TWO TIMES
     Route: 050

REACTIONS (1)
  - AGEUSIA [None]
